FAERS Safety Report 15312081 (Version 2)
Quarter: 2018Q4

REPORT INFORMATION
  Report Type: Spontaneous
  Country: PT (occurrence: PT)
  Receive Date: 20180823
  Receipt Date: 20181010
  Transmission Date: 20190204
  Serious: Yes (Hospitalization, Disabling)
  Sender: FDA-Public Use
  Company Number: PT-TEVA-2018-PT-947140

PATIENT
  Sex: Female

DRUGS (1)
  1. ATORVASTATIN [Suspect]
     Active Substance: ATORVASTATIN
     Indication: HYPERCHOLESTEROLAEMIA
     Dosage: 20 MILLIGRAM DAILY; THERE WAS A REDUCTION TO 10 MG/DAY WITH SLIGHT IMPROVEMENT.
     Route: 048
     Dates: end: 20180725

REACTIONS (6)
  - Chest pain [Recovering/Resolving]
  - Haematoma [Recovering/Resolving]
  - Rash pruritic [Recovering/Resolving]
  - Muscle fatigue [Recovering/Resolving]
  - Heart rate increased [Not Recovered/Not Resolved]
  - Amnesia [Recovering/Resolving]

NARRATIVE: CASE EVENT DATE: 201809
